FAERS Safety Report 4737350-5 (Version None)
Quarter: 2005Q3

REPORT INFORMATION
  Report Type: 
  Country: None (occurrence: None)
  Receive Date: 20050805
  Receipt Date: 20050728
  Transmission Date: 20060218
  Serious: Yes (Hospitalization)
  Sender: FDA-Public Use
  Company Number: 216479

PATIENT
  Age: 33 Year
  Sex: Female

DRUGS (3)
  1. XOLAIR [Suspect]
     Dosage: 375 MG
     Dates: start: 20050727
  2. LORTAB [Concomitant]
  3. VALIUM [Concomitant]

REACTIONS (2)
  - CONVULSION [None]
  - FEELING ABNORMAL [None]
